FAERS Safety Report 6413276-6 (Version None)
Quarter: 2009Q4

REPORT INFORMATION
  Report Type: 
  Country: None (occurrence: None)
  Receive Date: 20091026
  Receipt Date: 20091012
  Transmission Date: 20100525
  Serious: Yes (Hospitalization, Other)
  Sender: FDA-Public Use
  Company Number: NL-ROCHE-596597

PATIENT
  Sex: Female

DRUGS (3)
  1. LARIAM [Suspect]
     Indication: MALARIA PROPHYLAXIS
     Dosage: FREQUENCY REPORTED: 1X/WEEK.
     Route: 048
     Dates: start: 20080701
  2. LARIAM [Suspect]
     Route: 048
     Dates: start: 20080803, end: 20080921
  3. LARIAM [Suspect]
     Route: 048
     Dates: end: 20080926

REACTIONS (11)
  - ANXIETY [None]
  - CONTUSION [None]
  - DEHYDRATION [None]
  - DELIRIUM [None]
  - FEAR [None]
  - GASTROINTESTINAL BACTERIAL INFECTION [None]
  - PANIC ATTACK [None]
  - PSYCHOTIC DISORDER [None]
  - ROAD TRAFFIC ACCIDENT [None]
  - THERAPEUTIC AGENT TOXICITY [None]
  - THERMAL BURN [None]
